FAERS Safety Report 24444035 (Version 3)
Quarter: 2025Q2

REPORT INFORMATION
  Report Type: Spontaneous
  Country: CA (occurrence: None)
  Receive Date: 20241016
  Receipt Date: 20250408
  Transmission Date: 20250716
  Serious: Yes (Life-Threatening, Disabling, Other)
  Sender: ORION
  Company Number: CA-PFIZER INC-202400273598

PATIENT
  Age: 97 Year
  Sex: Female

DRUGS (122)
  1. METHOTREXATE [Suspect]
     Active Substance: METHOTREXATE
     Indication: Rheumatoid arthritis
  2. METHOTREXATE [Suspect]
     Active Substance: METHOTREXATE
  3. METHOTREXATE [Suspect]
     Active Substance: METHOTREXATE
  4. METHOTREXATE [Suspect]
     Active Substance: METHOTREXATE
  5. METHOTREXATE [Suspect]
     Active Substance: METHOTREXATE
  6. METHOTREXATE [Suspect]
     Active Substance: METHOTREXATE
  7. METHOTREXATE [Suspect]
     Active Substance: METHOTREXATE
  8. METHOTREXATE [Suspect]
     Active Substance: METHOTREXATE
  9. METHOTREXATE [Suspect]
     Active Substance: METHOTREXATE
  10. METHOTREXATE [Suspect]
     Active Substance: METHOTREXATE
  11. METHOTREXATE [Suspect]
     Active Substance: METHOTREXATE
  12. ADALIMUMAB [Suspect]
     Active Substance: ADALIMUMAB
     Indication: Rheumatoid arthritis
  13. RITUXIMAB [Suspect]
     Active Substance: RITUXIMAB
     Indication: Rheumatoid arthritis
  14. CALCIUM CHLORIDE [Suspect]
     Active Substance: CALCIUM CHLORIDE
     Indication: Product used for unknown indication
  15. XELJANZ [Suspect]
     Active Substance: TOFACITINIB CITRATE
     Indication: Rheumatoid arthritis
  16. XELJANZ [Suspect]
     Active Substance: TOFACITINIB CITRATE
  17. XELJANZ [Suspect]
     Active Substance: TOFACITINIB CITRATE
  18. SULFASALAZINE [Suspect]
     Active Substance: SULFASALAZINE
     Indication: Rheumatoid arthritis
  19. SULFASALAZINE [Suspect]
     Active Substance: SULFASALAZINE
  20. SULFASALAZINE [Suspect]
     Active Substance: SULFASALAZINE
  21. HYDROCORTISONE [Suspect]
     Active Substance: HYDROCORTISONE
     Indication: Product used for unknown indication
  22. HYDROCORTISONE [Suspect]
     Active Substance: HYDROCORTISONE
  23. PANTOPRAZOLE [Suspect]
     Active Substance: PANTOPRAZOLE
     Indication: Product used for unknown indication
  24. PANTOPRAZOLE [Suspect]
     Active Substance: PANTOPRAZOLE
  25. CELEBREX [Suspect]
     Active Substance: CELECOXIB
     Indication: Rheumatoid arthritis
  26. CELEBREX [Suspect]
     Active Substance: CELECOXIB
  27. ACETAMINOPHEN [Suspect]
     Active Substance: ACETAMINOPHEN
     Indication: Product used for unknown indication
  28. ACTEMRA [Suspect]
     Active Substance: TOCILIZUMAB
     Indication: Rheumatoid arthritis
  29. ACTEMRA [Suspect]
     Active Substance: TOCILIZUMAB
  30. ALENDRONATE SODIUM [Suspect]
     Active Substance: ALENDRONATE SODIUM
     Indication: Rheumatoid arthritis
  31. PREDNISONE [Suspect]
     Active Substance: PREDNISONE
     Indication: Rheumatoid arthritis
  32. PREDNISONE [Suspect]
     Active Substance: PREDNISONE
  33. PREDNISONE [Suspect]
     Active Substance: PREDNISONE
  34. ARAVA [Suspect]
     Active Substance: LEFLUNOMIDE
     Indication: Rheumatoid arthritis
  35. ARAVA [Suspect]
     Active Substance: LEFLUNOMIDE
  36. CALCIUM [Suspect]
     Active Substance: CALCIUM
     Indication: Product used for unknown indication
  37. CALCIUM CARBONATE [Suspect]
     Active Substance: CALCIUM CARBONATE
     Indication: Product used for unknown indication
  38. CETIRIZINE [Suspect]
     Active Substance: CETIRIZINE HYDROCHLORIDE
     Indication: Rheumatoid arthritis
  39. CETIRIZINE [Suspect]
     Active Substance: CETIRIZINE HYDROCHLORIDE
  40. CETIRIZINE HYDROCHLORIDE\PSEUDOEPHEDRINE HYDROCHLORIDE [Suspect]
     Active Substance: CETIRIZINE HYDROCHLORIDE\PSEUDOEPHEDRINE HYDROCHLORIDE
     Indication: Rheumatoid arthritis
  41. CHLORHEXIDINE [Suspect]
     Active Substance: CHLORHEXIDINE
     Indication: Product used for unknown indication
  42. CHOLECALCIFEROL [Suspect]
     Active Substance: CHOLECALCIFEROL
     Indication: Product used for unknown indication
  43. CHOLECALCIFEROL [Suspect]
     Active Substance: CHOLECALCIFEROL
  44. CIMZIA [Suspect]
     Active Substance: CERTOLIZUMAB PEGOL
     Indication: Rheumatoid arthritis
  45. CIMZIA [Suspect]
     Active Substance: CERTOLIZUMAB PEGOL
  46. CIMZIA [Suspect]
     Active Substance: CERTOLIZUMAB PEGOL
  47. CORTISONE ACETATE [Suspect]
     Active Substance: CORTISONE ACETATE
     Indication: Rheumatoid arthritis
  48. COSENTYX [Suspect]
     Active Substance: SECUKINUMAB
     Indication: Psoriatic arthropathy
  49. DESOXIMETASONE [Suspect]
     Active Substance: DESOXIMETASONE
     Indication: Rheumatoid arthritis
  50. DESOXIMETASONE [Suspect]
     Active Substance: DESOXIMETASONE
  51. DESOXIMETASONE [Suspect]
     Active Substance: DESOXIMETASONE
  52. DICLOFENAC [Suspect]
     Active Substance: DICLOFENAC
     Indication: Product used for unknown indication
  53. DICLOFENAC POTASSIUM [Suspect]
     Active Substance: DICLOFENAC POTASSIUM
     Indication: Product used for unknown indication
  54. DICLOFENAC SODIUM [Suspect]
     Active Substance: DICLOFENAC SODIUM
     Indication: Product used for unknown indication
  55. ERELZI [Suspect]
     Active Substance: ETANERCEPT-SZZS
     Indication: Rheumatoid arthritis
  56. ERELZI [Suspect]
     Active Substance: ETANERCEPT-SZZS
  57. ERELZI [Suspect]
     Active Substance: ETANERCEPT-SZZS
  58. ERELZI [Suspect]
     Active Substance: ETANERCEPT-SZZS
  59. FLUMETHASONE [Suspect]
     Active Substance: FLUMETHASONE
     Indication: Rheumatoid arthritis
  60. FOLIC ACID [Suspect]
     Active Substance: FOLIC ACID
     Indication: Rheumatoid arthritis
  61. FOLIC ACID [Suspect]
     Active Substance: FOLIC ACID
  62. FOLIC ACID [Suspect]
     Active Substance: FOLIC ACID
  63. FOLIC ACID [Suspect]
     Active Substance: FOLIC ACID
  64. FOLIC ACID [Suspect]
     Active Substance: FOLIC ACID
  65. FOSAMAX [Suspect]
     Active Substance: ALENDRONATE SODIUM
     Indication: Rheumatoid arthritis
  66. FOSAMAX [Suspect]
     Active Substance: ALENDRONATE SODIUM
  67. HUMIRA [Suspect]
     Active Substance: ADALIMUMAB
     Indication: Rheumatoid arthritis
  68. HUMIRA [Suspect]
     Active Substance: ADALIMUMAB
  69. HYDROXYCHLOROQUINE [Suspect]
     Active Substance: HYDROXYCHLOROQUINE
     Indication: Rheumatoid arthritis
  70. HYDROXYCHLOROQUINE [Suspect]
     Active Substance: HYDROXYCHLOROQUINE
  71. HYDROXYCHLOROQUINE SULFATE [Suspect]
     Active Substance: HYDROXYCHLOROQUINE SULFATE
     Indication: Rheumatoid arthritis
  72. HYDROXYCHLOROQUINE SULFATE [Suspect]
     Active Substance: HYDROXYCHLOROQUINE SULFATE
  73. ISOPROPYL ALCOHOL [Suspect]
     Active Substance: ISOPROPYL ALCOHOL
     Indication: Rheumatoid arthritis
  74. KEVZARA [Suspect]
     Active Substance: SARILUMAB
     Indication: Rheumatoid arthritis
  75. LEFLUNOMIDE [Suspect]
     Active Substance: LEFLUNOMIDE
     Indication: Rheumatoid arthritis
  76. NAPROXEN [Suspect]
     Active Substance: NAPROXEN
     Indication: Rheumatoid arthritis
  77. NAPROXEN [Suspect]
     Active Substance: NAPROXEN
  78. NAPROXEN SODIUM [Suspect]
     Active Substance: NAPROXEN SODIUM
     Indication: Rheumatoid arthritis
  79. ORENCIA [Suspect]
     Active Substance: ABATACEPT
     Indication: Rheumatoid arthritis
  80. ORENCIA [Suspect]
     Active Substance: ABATACEPT
  81. ORENCIA [Suspect]
     Active Substance: ABATACEPT
  82. OXYCODONE HYDROCHLORIDE [Suspect]
     Active Substance: OXYCODONE HYDROCHLORIDE
     Indication: Product used for unknown indication
  83. OXYCODONE TEREPHTHALATE [Suspect]
     Active Substance: OXYCODONE TEREPHTHALATE
     Indication: Product used for unknown indication
  84. PHENYLEPHRINE HYDROCHLORIDE [Suspect]
     Active Substance: PHENYLEPHRINE HYDROCHLORIDE
     Indication: Rheumatoid arthritis
  85. PHTHALYLSULFATHIAZOLE [Suspect]
     Active Substance: PHTHALYLSULFATHIAZOLE
     Indication: Rheumatoid arthritis
  86. PHTHALYLSULFATHIAZOLE [Suspect]
     Active Substance: PHTHALYLSULFATHIAZOLE
  87. PHTHALYLSULFATHIAZOLE [Suspect]
     Active Substance: PHTHALYLSULFATHIAZOLE
  88. PHTHALYLSULFATHIAZOLE [Suspect]
     Active Substance: PHTHALYLSULFATHIAZOLE
  89. PHTHALYLSULFATHIAZOLE [Suspect]
     Active Substance: PHTHALYLSULFATHIAZOLE
  90. PREDNISONE [Suspect]
     Active Substance: PREDNISONE
     Indication: Rheumatoid arthritis
  91. PSEUDOEPHEDRINE [Suspect]
     Active Substance: PSEUDOEPHEDRINE
     Indication: Rheumatoid arthritis
  92. PSEUDOEPHEDRINE [Suspect]
     Active Substance: PSEUDOEPHEDRINE
  93. CETIRIZINE HYDROCHLORIDE\PSEUDOEPHEDRINE HYDROCHLORIDE [Suspect]
     Active Substance: CETIRIZINE HYDROCHLORIDE\PSEUDOEPHEDRINE HYDROCHLORIDE
     Indication: Rheumatoid arthritis
  94. CETIRIZINE HYDROCHLORIDE\PSEUDOEPHEDRINE HYDROCHLORIDE [Suspect]
     Active Substance: CETIRIZINE HYDROCHLORIDE\PSEUDOEPHEDRINE HYDROCHLORIDE
  95. SIMPONI [Suspect]
     Active Substance: GOLIMUMAB
     Indication: Rheumatoid arthritis
  96. SIMPONI [Suspect]
     Active Substance: GOLIMUMAB
  97. SIMPONI [Suspect]
     Active Substance: GOLIMUMAB
  98. STELARA [Suspect]
     Active Substance: USTEKINUMAB
     Indication: Product used for unknown indication
  99. TRIPROLIDINE HYDROCHLORIDE [Suspect]
     Active Substance: TRIPROLIDINE HYDROCHLORIDE
     Indication: Product used for unknown indication
  100. VITAMIN C [Suspect]
     Active Substance: ASCORBIC ACID
     Indication: Product used for unknown indication
  101. DICLOFENAC DIETHYLAMINE [Suspect]
     Active Substance: DICLOFENAC DIETHYLAMINE
     Indication: Product used for unknown indication
  102. REMICADE [Suspect]
     Active Substance: INFLIXIMAB
     Indication: Rheumatoid arthritis
  103. DOCONEXENT [Concomitant]
     Active Substance: DOCONEXENT
  104. ALENDRONIC ACID [Concomitant]
     Active Substance: ALENDRONIC ACID
  105. PANTOPRAZOLE SODIUM ANHYDROUS [Concomitant]
     Active Substance: PANTOPRAZOLE SODIUM ANHYDROUS
  106. ATIVAN [Concomitant]
     Active Substance: LORAZEPAM
  107. CAFFEINE [Concomitant]
     Active Substance: CAFFEINE
  108. CAFFEINE CITRATE [Concomitant]
     Active Substance: CAFFEINE CITRATE
  109. CALCIUM GLUBIONATE [Concomitant]
     Active Substance: CALCIUM GLUBIONATE
  110. CYANOCOBALAMIN [Concomitant]
     Active Substance: CYANOCOBALAMIN
  111. ERGOCALCIFEROL [Concomitant]
     Active Substance: ERGOCALCIFEROL
  112. GLUCOSAMINE [Concomitant]
     Active Substance: GLUCOSAMINE
  113. IBUPROFEN [Concomitant]
     Active Substance: IBUPROFEN
  114. LISINOPRIL [Concomitant]
     Active Substance: LISINOPRIL
  115. LORAZEPAM [Concomitant]
     Active Substance: LORAZEPAM
  116. MAGNESIUM [Concomitant]
     Active Substance: MAGNESIUM
  117. QUETIAPINE [Concomitant]
     Active Substance: QUETIAPINE
  118. RAMIPRIL [Concomitant]
     Active Substance: RAMIPRIL
  119. RISEDRONATE SODIUM [Concomitant]
     Active Substance: RISEDRONATE SODIUM
  120. SULFASALAZINE [Concomitant]
     Active Substance: SULFASALAZINE
  121. FISH OIL [Concomitant]
     Active Substance: FISH OIL
  122. ZEPATIER [Concomitant]
     Active Substance: ELBASVIR\GRAZOPREVIR

REACTIONS (24)
  - Dyspepsia [Not Recovered/Not Resolved]
  - Gait disturbance [Not Recovered/Not Resolved]
  - Injury [Not Recovered/Not Resolved]
  - Insomnia [Not Recovered/Not Resolved]
  - Joint swelling [Not Recovered/Not Resolved]
  - Liver injury [Not Recovered/Not Resolved]
  - Migraine [Not Recovered/Not Resolved]
  - Mobility decreased [Not Recovered/Not Resolved]
  - Nausea [Not Recovered/Not Resolved]
  - Oedema [Not Recovered/Not Resolved]
  - Pain in extremity [Not Recovered/Not Resolved]
  - Pemphigus [Not Recovered/Not Resolved]
  - Pericarditis [Not Recovered/Not Resolved]
  - Pneumonia [Not Recovered/Not Resolved]
  - Psoriatic arthropathy [Not Recovered/Not Resolved]
  - Pulmonary fibrosis [Not Recovered/Not Resolved]
  - Pyrexia [Not Recovered/Not Resolved]
  - Sinusitis [Not Recovered/Not Resolved]
  - Sleep disorder [Not Recovered/Not Resolved]
  - Stomatitis [Not Recovered/Not Resolved]
  - Type 2 diabetes mellitus [Not Recovered/Not Resolved]
  - Ulcer haemorrhage [Not Recovered/Not Resolved]
  - Urticaria [Not Recovered/Not Resolved]
  - Weight increased [Not Recovered/Not Resolved]
